FAERS Safety Report 13274399 (Version 1)
Quarter: 2017Q1

REPORT INFORMATION
  Report Type: Spontaneous
  Country: US (occurrence: US)
  Receive Date: 20170227
  Receipt Date: 20170227
  Transmission Date: 20170428
  Serious: Yes (Other)
  Sender: FDA-Public Use
  Company Number: US-PURACAP PHARMACEUTICAL LLC-2017EPC00029

PATIENT
  Age: 38 Year
  Sex: Male

DRUGS (2)
  1. MUCINEX FAST-MAX DAY SEVERE COLD AND NIGHT COLD AND FLU [Suspect]
     Active Substance: ACETAMINOPHEN\DEXTROMETHORPHAN HYDROBROMIDE\DOXYLAMINE SUCCINATE\GUAIFENESIN\PHENYLEPHRINE HYDROCHLORIDE
     Dosage: 6 TOTAL
     Dates: start: 20170129, end: 20170131
  2. MUCINEX FAST-MAX SEVERE CONGESTION AND COUGH CLEAR AND COOL [Suspect]
     Active Substance: DEXTROMETHORPHAN HYDROBROMIDE\GUAIFENESIN\PHENYLEPHRINE HYDROCHLORIDE
     Dosage: UNK
     Dates: start: 201702

REACTIONS (5)
  - Obsessive thoughts [Recovered/Resolved]
  - Migraine [Unknown]
  - Dehydration [Recovered/Resolved]
  - Diarrhoea [Unknown]
  - Hallucination [Recovered/Resolved]

NARRATIVE: CASE EVENT DATE: 20170129
